FAERS Safety Report 13896073 (Version 1)
Quarter: 2017Q3

REPORT INFORMATION
  Report Type: Spontaneous
  Country: FR (occurrence: FR)
  Receive Date: 20170823
  Receipt Date: 20170823
  Transmission Date: 20171127
  Serious: Yes (Hospitalization)
  Sender: FDA-Public Use
  Company Number: FR-ACCORD-057408

PATIENT
  Age: 60 Year
  Sex: Female

DRUGS (7)
  1. PERJETA [Concomitant]
     Active Substance: PERTUZUMAB
     Indication: BREAST CANCER METASTATIC
     Dosage: 420 MG
     Dates: start: 201702, end: 20170710
  2. KARDEGIC [Concomitant]
     Active Substance: ASPIRIN LYSINE
  3. DOCETAXEL ACCORD [Suspect]
     Active Substance: DOCETAXEL
     Indication: BREAST CANCER METASTATIC
     Dates: start: 201702, end: 20170710
  4. SPECTRAL 5 [Concomitant]
  5. FOLIC ACID. [Concomitant]
     Active Substance: FOLIC ACID
     Dosage: 5 MG
  6. AMLOR 5 [Concomitant]
  7. HERCEPTIN [Concomitant]
     Active Substance: TRASTUZUMAB
     Indication: BREAST CANCER METASTATIC
     Dosage: 150 MG
     Dates: start: 201702, end: 20170710

REACTIONS (2)
  - Stevens-Johnson syndrome [Recovered/Resolved]
  - Herpes virus infection [Unknown]

NARRATIVE: CASE EVENT DATE: 20170725
